FAERS Safety Report 25115104 (Version 2)
Quarter: 2025Q2

REPORT INFORMATION
  Report Type: Spontaneous
  Country: DE (occurrence: DE)
  Receive Date: 20250324
  Receipt Date: 20250401
  Transmission Date: 20250716
  Serious: Yes (Hospitalization, Other)
  Sender: SANDOZ
  Company Number: DE-MLMSERVICE-20241223-PI316339-00327-1

PATIENT
  Age: 28 Year
  Sex: Male

DRUGS (46)
  1. LACOSAMIDE [Suspect]
     Active Substance: LACOSAMIDE
     Indication: Generalised tonic-clonic seizure
     Route: 065
  2. LACOSAMIDE [Suspect]
     Active Substance: LACOSAMIDE
     Indication: Partial seizures
  3. LACOSAMIDE [Suspect]
     Active Substance: LACOSAMIDE
     Indication: Rasmussen encephalitis
  4. LACOSAMIDE [Suspect]
     Active Substance: LACOSAMIDE
     Indication: Seizure
  5. LEVETIRACETAM [Suspect]
     Active Substance: LEVETIRACETAM
     Indication: Generalised tonic-clonic seizure
     Route: 065
  6. LEVETIRACETAM [Suspect]
     Active Substance: LEVETIRACETAM
     Indication: Partial seizures
  7. LEVETIRACETAM [Suspect]
     Active Substance: LEVETIRACETAM
     Indication: Rasmussen encephalitis
  8. LEVETIRACETAM [Suspect]
     Active Substance: LEVETIRACETAM
     Indication: Seizure
  9. PHENYTOIN [Suspect]
     Active Substance: PHENYTOIN
     Indication: Generalised tonic-clonic seizure
     Route: 065
  10. PHENYTOIN [Suspect]
     Active Substance: PHENYTOIN
     Indication: Partial seizures
  11. PHENYTOIN [Suspect]
     Active Substance: PHENYTOIN
     Indication: Rasmussen encephalitis
  12. PHENYTOIN [Suspect]
     Active Substance: PHENYTOIN
     Indication: Seizure
  13. PHENOBARBITAL [Suspect]
     Active Substance: PHENOBARBITAL
     Indication: Rasmussen encephalitis
     Dosage: 100 MG/DAY
     Route: 065
  14. PHENOBARBITAL [Suspect]
     Active Substance: PHENOBARBITAL
     Indication: Generalised tonic-clonic seizure
     Dosage: 200 MG, QD
     Route: 065
  15. PHENOBARBITAL [Suspect]
     Active Substance: PHENOBARBITAL
     Indication: Seizure
     Dosage: 225 MG, QD
     Route: 065
  16. PHENOBARBITAL [Suspect]
     Active Substance: PHENOBARBITAL
     Indication: Partial seizures
     Dosage: 75 MG/DAY
     Route: 065
  17. TACROLIMUS [Suspect]
     Active Substance: TACROLIMUS
     Indication: Immunomodulatory therapy
     Route: 065
  18. TOPIRAMATE [Suspect]
     Active Substance: TOPIRAMATE
     Indication: Generalised tonic-clonic seizure
     Route: 065
  19. TOPIRAMATE [Suspect]
     Active Substance: TOPIRAMATE
     Indication: Partial seizures
  20. TOPIRAMATE [Suspect]
     Active Substance: TOPIRAMATE
     Indication: Rasmussen encephalitis
  21. TOPIRAMATE [Suspect]
     Active Substance: TOPIRAMATE
     Indication: Seizure
  22. VALPROATE [Suspect]
     Active Substance: VALPROIC ACID
     Indication: Seizure
     Route: 065
  23. VALPROATE [Suspect]
     Active Substance: VALPROIC ACID
     Indication: Generalised tonic-clonic seizure
     Route: 065
  24. VALPROATE [Suspect]
     Active Substance: VALPROIC ACID
     Indication: Partial seizures
  25. VALPROATE [Suspect]
     Active Substance: VALPROIC ACID
     Indication: Rasmussen encephalitis
  26. ZONISAMIDE [Suspect]
     Active Substance: ZONISAMIDE
     Indication: Generalised tonic-clonic seizure
     Route: 065
  27. ZONISAMIDE [Suspect]
     Active Substance: ZONISAMIDE
     Indication: Partial seizures
  28. ZONISAMIDE [Suspect]
     Active Substance: ZONISAMIDE
     Indication: Rasmussen encephalitis
  29. ZONISAMIDE [Suspect]
     Active Substance: ZONISAMIDE
     Indication: Seizure
  30. CENOBAMATE [Concomitant]
     Active Substance: CENOBAMATE
     Indication: Partial seizures
     Dosage: 100 MG/DAY
     Route: 065
  31. CENOBAMATE [Concomitant]
     Active Substance: CENOBAMATE
     Indication: Rasmussen encephalitis
     Dosage: 200 MG/DAY
     Route: 065
  32. CENOBAMATE [Concomitant]
     Active Substance: CENOBAMATE
     Dosage: 300 MG/DAY
     Route: 065
  33. TACROLIMUS [Concomitant]
     Active Substance: TACROLIMUS
     Indication: Partial seizures
     Route: 065
  34. TACROLIMUS [Concomitant]
     Active Substance: TACROLIMUS
     Indication: Rasmussen encephalitis
  35. CARBAMAZEPINE [Interacting]
     Active Substance: CARBAMAZEPINE
     Indication: Generalised tonic-clonic seizure
     Route: 065
  36. CARBAMAZEPINE [Interacting]
     Active Substance: CARBAMAZEPINE
     Indication: Partial seizures
  37. CARBAMAZEPINE [Interacting]
     Active Substance: CARBAMAZEPINE
     Indication: Rasmussen encephalitis
  38. CARBAMAZEPINE [Interacting]
     Active Substance: CARBAMAZEPINE
     Indication: Seizure
  39. LAMOTRIGINE [Interacting]
     Active Substance: LAMOTRIGINE
     Indication: Generalised tonic-clonic seizure
     Route: 065
  40. LAMOTRIGINE [Interacting]
     Active Substance: LAMOTRIGINE
     Indication: Partial seizures
  41. LAMOTRIGINE [Interacting]
     Active Substance: LAMOTRIGINE
     Indication: Rasmussen encephalitis
  42. LAMOTRIGINE [Interacting]
     Active Substance: LAMOTRIGINE
     Indication: Seizure
  43. OXCARBAZEPINE [Interacting]
     Active Substance: OXCARBAZEPINE
     Indication: Generalised tonic-clonic seizure
     Dosage: 1200 MG/DAY
     Route: 065
  44. OXCARBAZEPINE [Interacting]
     Active Substance: OXCARBAZEPINE
     Indication: Partial seizures
  45. OXCARBAZEPINE [Interacting]
     Active Substance: OXCARBAZEPINE
     Indication: Rasmussen encephalitis
  46. OXCARBAZEPINE [Interacting]
     Active Substance: OXCARBAZEPINE
     Indication: Seizure

REACTIONS (9)
  - Drug ineffective [Unknown]
  - Sedation [Unknown]
  - Pancreatitis [Unknown]
  - Dysarthria [Unknown]
  - Ataxia [Unknown]
  - Diplopia [Unknown]
  - Vision blurred [Unknown]
  - Drug interaction [Unknown]
  - Drug ineffective [Unknown]
